FAERS Safety Report 9651048 (Version 1)
Quarter: 2013Q4

REPORT INFORMATION
  Report Type: Spontaneous
  Country: US (occurrence: US)
  Receive Date: 20131029
  Receipt Date: 20131029
  Transmission Date: 20140711
  Serious: Yes (Other)
  Sender: FDA-Public Use
  Company Number: US-PFIZER INC-2013302135

PATIENT
  Age: 61 Year
  Sex: Female

DRUGS (1)
  1. METAXALONE [Suspect]
     Dosage: 56 G, UNK

REACTIONS (6)
  - Overdose [Unknown]
  - Pyrexia [Recovering/Resolving]
  - Hypertension [Unknown]
  - Tachycardia [Recovering/Resolving]
  - Tachypnoea [Unknown]
  - Hyperhidrosis [Unknown]
